FAERS Safety Report 21933942 (Version 7)
Quarter: 2024Q2

REPORT INFORMATION
  Report Type: Spontaneous
  Country: CA (occurrence: CA)
  Receive Date: 20230201
  Receipt Date: 20240621
  Transmission Date: 20240716
  Serious: Yes (Death, Other)
  Sender: FDA-Public Use
  Company Number: CA-002147023-NVSC2023CA015403

PATIENT
  Age: 74 Year
  Sex: Female
  Weight: 50 kg

DRUGS (40)
  1. CYCLOSPORINE [Suspect]
     Active Substance: CYCLOSPORINE
     Indication: Haemoglobin decreased
     Dosage: UNK
     Route: 065
  2. CYCLOSPORINE [Suspect]
     Active Substance: CYCLOSPORINE
     Dosage: UNK
     Route: 065
  3. RITUXIMAB [Suspect]
     Active Substance: RITUXIMAB
     Indication: Neuromyelitis optica spectrum disorder
     Dosage: 500 MG
     Route: 042
  4. RITUXIMAB [Suspect]
     Active Substance: RITUXIMAB
     Indication: Multiple sclerosis
     Dosage: 500 MG, Q3MO (1 EVERY 3 MONTHS)
     Route: 042
  5. RITUXIMAB [Suspect]
     Active Substance: RITUXIMAB
     Dosage: 1000 MG (1 EVERY 6 MONTHS)
     Route: 042
  6. RITUXIMAB [Suspect]
     Active Substance: RITUXIMAB
     Dosage: 500 MG, Q3MO (1 EVERY 3 MONTHS)
     Route: 042
  7. RITUXIMAB [Suspect]
     Active Substance: RITUXIMAB
     Dosage: 1000 MG, CYCLIC
     Route: 065
  8. RITUXIMAB [Suspect]
     Active Substance: RITUXIMAB
     Dosage: 500 MG, Q3MO (1 EVERY 3 MONTHS)
     Route: 042
  9. RITUXIMAB [Suspect]
     Active Substance: RITUXIMAB
     Dosage: 500 MG, Q3MO (1 EVERY 3 MONTHS)
     Route: 042
  10. RITUXIMAB [Suspect]
     Active Substance: RITUXIMAB
     Dosage: 1000 MG, EVERY 15 DAYS
     Route: 042
  11. RITUXIMAB [Suspect]
     Active Substance: RITUXIMAB
     Indication: Neuromyelitis optica spectrum disorder
     Dosage: 1000 MG
     Route: 042
  12. RITUXIMAB [Suspect]
     Active Substance: RITUXIMAB
     Indication: Multiple sclerosis
     Dosage: 1000 MG
     Route: 042
  13. RITUXIMAB [Suspect]
     Active Substance: RITUXIMAB
     Dosage: 1000 MG (1 EVERY 15 DAYS)
     Route: 042
  14. RITUXIMAB [Suspect]
     Active Substance: RITUXIMAB
     Dosage: UNK
     Route: 065
  15. RITUXIMAB [Suspect]
     Active Substance: RITUXIMAB
     Dosage: 500 MG (1 EVERY 3 MONTHS)
     Route: 042
  16. RITUXIMAB [Suspect]
     Active Substance: RITUXIMAB
     Dosage: 1000 MG, CYCLIC
     Route: 042
  17. AMLODIPINE [Suspect]
     Active Substance: AMLODIPINE BESYLATE
     Indication: Blood pressure increased
     Dosage: UNK
     Route: 065
  18. AMLODIPINE [Suspect]
     Active Substance: AMLODIPINE BESYLATE
     Dosage: UNK
     Route: 065
  19. PREDNISONE [Suspect]
     Active Substance: PREDNISONE
     Indication: Product used for unknown indication
     Dosage: UNK
     Route: 065
  20. PREDNISONE [Suspect]
     Active Substance: PREDNISONE
     Dosage: UNK
     Route: 065
  21. ACETAMINOPHEN [Concomitant]
     Active Substance: ACETAMINOPHEN
     Indication: Product used for unknown indication
     Dosage: 650 MG
     Route: 048
  22. ACETAMINOPHEN [Concomitant]
     Active Substance: ACETAMINOPHEN
     Dosage: 650 MG
     Route: 048
  23. ACETAMINOPHEN [Concomitant]
     Active Substance: ACETAMINOPHEN
     Dosage: 650 MG
     Route: 048
  24. BILBERRY [Concomitant]
     Active Substance: BILBERRY
     Indication: Product used for unknown indication
     Dosage: UNK
     Route: 065
  25. BILBERRY [Concomitant]
     Active Substance: BILBERRY
     Dosage: UNK
     Route: 065
  26. CALCIUM [Concomitant]
     Active Substance: CALCIUM
     Indication: Product used for unknown indication
     Dosage: UNK
     Route: 065
  27. CALCIUM [Concomitant]
     Active Substance: CALCIUM
     Dosage: UNK
     Route: 065
  28. DIPHENHYDRAMINE [Concomitant]
     Active Substance: DIPHENHYDRAMINE
     Indication: Premedication
     Dosage: 50 MG
     Route: 048
  29. MAGNESIUM [Concomitant]
     Active Substance: MAGNESIUM
     Indication: Product used for unknown indication
     Dosage: UNK
     Route: 065
  30. METHYLPREDNISOLONE [Concomitant]
     Active Substance: METHYLPREDNISOLONE
     Indication: Product used for unknown indication
     Dosage: 100 MG
     Route: 042
  31. OMEGA 3 [Concomitant]
     Active Substance: CAPSAICIN
     Indication: Product used for unknown indication
     Dosage: UNK
     Route: 065
  32. ORACORT [Concomitant]
     Indication: Product used for unknown indication
     Dosage: UNK
     Route: 065
  33. RABEPRAZOLE [Concomitant]
     Active Substance: RABEPRAZOLE
     Indication: Product used for unknown indication
     Dosage: UNK
     Route: 065
  34. RANITIDINE [Concomitant]
     Active Substance: RANITIDINE
     Indication: Product used for unknown indication
     Dosage: 150 MG
     Route: 065
  35. RITUXIMAB [Concomitant]
     Active Substance: RITUXIMAB
     Indication: Product used for unknown indication
     Dosage: UNK
     Route: 065
  36. SYNTHROID [Concomitant]
     Active Substance: LEVOTHYROXINE SODIUM
     Indication: Product used for unknown indication
     Dosage: UNK
     Route: 065
  37. TRIAMCINOLONE ACETONIDE [Concomitant]
     Active Substance: TRIAMCINOLONE ACETONIDE
     Indication: Product used for unknown indication
     Dosage: UNK (SUSPENSION INTRA- ARTICULAR)
     Route: 065
  38. TRIAMCINOLONE ACETONIDE [Concomitant]
     Active Substance: TRIAMCINOLONE ACETONIDE
     Dosage: UNK
     Route: 065
  39. TYLENOL [Concomitant]
     Active Substance: ACETAMINOPHEN
     Indication: Product used for unknown indication
     Dosage: UNK
     Route: 065
  40. TYLENOL [Concomitant]
     Active Substance: ACETAMINOPHEN
     Dosage: UNK
     Route: 065

REACTIONS (38)
  - Abdominal distension [Fatal]
  - Allergy to chemicals [Fatal]
  - Aphthous ulcer [Fatal]
  - Balance disorder [Fatal]
  - Blood iron increased [Fatal]
  - Blood pressure fluctuation [Fatal]
  - Blood pressure systolic abnormal [Fatal]
  - Blood pressure systolic increased [Fatal]
  - Dyschromatopsia [Fatal]
  - Eye pain [Fatal]
  - Haemoglobin decreased [Fatal]
  - Haemorrhoids [Fatal]
  - Joint swelling [Fatal]
  - Metamorphopsia [Fatal]
  - Nerve compression [Fatal]
  - Optic neuritis [Fatal]
  - Pigmentation disorder [Fatal]
  - Polymers allergy [Fatal]
  - Skin mass [Fatal]
  - Vision blurred [Fatal]
  - Vulvovaginal pruritus [Fatal]
  - Blood pressure increased [Fatal]
  - Blood pressure increased [Fatal]
  - Eastern Cooperative Oncology Group performance status abnormal [Fatal]
  - Pruritus [Fatal]
  - Pain [Fatal]
  - Rash [Fatal]
  - Weight increased [Fatal]
  - Constipation [Fatal]
  - Migraine [Fatal]
  - Abdominal pain upper [Fatal]
  - Migraine with aura [Fatal]
  - Heart rate increased [Fatal]
  - Fatigue [Fatal]
  - Chest pain [Fatal]
  - Headache [Fatal]
  - Rash [Fatal]
  - Off label use [Fatal]
